FAERS Safety Report 11118890 (Version 1)
Quarter: 2015Q2

REPORT INFORMATION
  Report Type: Spontaneous
  Country: IT (occurrence: IT)
  Receive Date: 20150518
  Receipt Date: 20150518
  Transmission Date: 20150821
  Serious: Yes (Hospitalization)
  Sender: FDA-Public Use
  Company Number: IT-TEVA-562762ACC

PATIENT
  Age: 61 Year
  Sex: Male

DRUGS (6)
  1. FLUOROURACILE TEVA - 1 G/20 ML SOLUZIONE PER INFUSIONE [Suspect]
     Active Substance: FLUOROURACIL
     Indication: LARYNGEAL CANCER
     Dosage: 1230 MG CYCLICAL
     Route: 042
     Dates: start: 20150421, end: 20150424
  2. ONDANSETRON KABI - 2 MG/ML SOLUZIONE INIETTABILE [Concomitant]
     Indication: PRODUCT USED FOR UNKNOWN INDICATION
     Dosage: 8 MG
     Route: 042
  3. CISPLATIN. [Suspect]
     Active Substance: CISPLATIN
     Indication: LARYNGEAL CANCER
     Dosage: 120 MG CYCLICAL
     Route: 042
     Dates: start: 20150421, end: 20150424
  4. ZANTAC - 50 MG/5 ML SOLUZIONE INIETTABILE [Concomitant]
     Indication: PRODUCT USED FOR UNKNOWN INDICATION
     Dosage: 50 MG
     Route: 042
  5. DOCETAXEL ACTAVIS - 20 MG/ML CONCENTRATO PER SOLUZIONE PER INFUSIONE [Suspect]
     Active Substance: DOCETAXEL
     Indication: LARYNGEAL CANCER
     Dosage: 120 MG CYCLICAL
     Route: 042
     Dates: start: 20150421, end: 20150424
  6. SOLDESAM - 8 MG/2 ML SOLUZIONE INIETTABILE [Concomitant]
     Active Substance: DEXAMETHASONE SODIUM PHOSPHATE
     Indication: PRODUCT USED FOR UNKNOWN INDICATION
     Dosage: 8 MG
     Route: 042

REACTIONS (1)
  - Febrile neutropenia [Recovered/Resolved]

NARRATIVE: CASE EVENT DATE: 20150429
